FAERS Safety Report 9011980 (Version 1)
Quarter: 2012Q4

REPORT INFORMATION
  Report Type: Spontaneous
  Country: US (occurrence: None)
  Receive Date: 20121228
  Receipt Date: 20121228
  Transmission Date: 20130627
  Serious: Yes (Hospitalization)
  Sender: FDA-Public Use
  Company Number: 1544206

PATIENT
  Age: 9 Year
  Sex: Female
  Weight: 12.7 kg

DRUGS (11)
  1. MEROPENEM [Suspect]
     Indication: DRUG USE FOR UNKNOWN INDICATION
     Dosage: (3 day)
     Route: 042
     Dates: start: 20121120, end: 20121120
  2. FLUCLOXACILLIN [Concomitant]
  3. VITAMIN A /00056001/ [Concomitant]
  4. VITAMIN E /00110501/ [Concomitant]
  5. COLECALCIFEROL [Concomitant]
  6. AZITHROMYCIN [Concomitant]
  7. CREON [Concomitant]
  8. PREDNISOLONE [Concomitant]
  9. COLOMYCIN /00013203/ [Concomitant]
  10. DORNASE ALFA [Concomitant]
  11. VITAMIN D /00107901/ [Concomitant]

REACTIONS (7)
  - Cough [None]
  - Chest discomfort [None]
  - Skin discolouration [None]
  - Palmar erythema [None]
  - Cyanosis [None]
  - Hypersensitivity [None]
  - Wheezing [None]
